FAERS Safety Report 5134151-3 (Version None)
Quarter: 2006Q4

REPORT INFORMATION
  Report Type: 
  Country: None (occurrence: None)
  Receive Date: 20061024
  Receipt Date: 20060605
  Transmission Date: 20070319
  Serious: Yes (Hospitalization)
  Sender: FDA-Public Use
  Company Number: IT-ABBOTT-06P-083-0335223-00

PATIENT
  Sex: Female

DRUGS (6)
  1. RITONAVIR SOFT GELATIN CAPSULES [Suspect]
     Indication: HIV INFECTION
     Route: 048
     Dates: start: 20051130, end: 20060427
  2. TIPRANAVIR [Concomitant]
     Indication: HIV INFECTION
     Route: 048
     Dates: start: 20051130, end: 20060427
  3. VIREAD [Concomitant]
     Indication: HIV INFECTION
     Route: 048
     Dates: start: 20051130
  4. LAMIVUDINE + ZIDOVUDINE [Concomitant]
     Indication: HIV INFECTION
     Route: 048
     Dates: start: 20051130
  5. FUZEON [Concomitant]
     Indication: HIV INFECTION
     Route: 058
     Dates: start: 20051130
  6. APTIVUS [Concomitant]
     Indication: HIV INFECTION
     Dates: start: 20060427

REACTIONS (1)
  - IMMUNE RECONSTITUTION SYNDROME [None]
